FAERS Safety Report 10585392 (Version 1)
Quarter: 2014Q4

REPORT INFORMATION
  Report Type: Report from Study
  Country: US (occurrence: US)
  Receive Date: 20141114
  Receipt Date: 20141114
  Transmission Date: 20150529
  Serious: Yes (Other)
  Sender: FDA-Public Use
  Company Number: US-TAKEDA-2014MPI002972

PATIENT
  Age: 66 Year

DRUGS (2)
  1. DEXAMETHASONE. [Suspect]
     Active Substance: DEXAMETHASONE
     Indication: PLASMA CELL MYELOMA
     Dosage: 40 MG, DAY 1-4, 9-12, 17-28 FOR 2 CYCLES THEN WEEKLY
     Route: 048
     Dates: start: 20110925, end: 20120220
  2. VELCADE [Suspect]
     Active Substance: BORTEZOMIB
     Indication: PLASMA CELL MYELOMA
     Dosage: 1.3 MG/M2, ON DAYS 1 AND 4 EVERY 7 DAYS, 1 WEEK OFF EVERY 14 DAYS
     Route: 042
     Dates: start: 20110926, end: 20120220

REACTIONS (2)
  - Diverticulitis [Unknown]
  - Diverticular perforation [Unknown]

NARRATIVE: CASE EVENT DATE: 20111207
